FAERS Safety Report 7377411-8 (Version None)
Quarter: 2011Q1

REPORT INFORMATION
  Report Type: 
  Country: None (occurrence: None)
  Receive Date: 20110328
  Receipt Date: 20110322
  Transmission Date: 20110831
  Serious: Yes (Hospitalization)
  Sender: FDA-Public Use
  Company Number: DK-BAXTER-2010BH024796

PATIENT
  Age: 15 Year
  Sex: Male
  Weight: 70 kg

DRUGS (1)
  1. GAMMAGARD LIQUID [Suspect]
     Indication: THROMBOCYTOPENIA
     Dosage: 100 MG/ML
     Route: 042
     Dates: start: 20100924, end: 20100924

REACTIONS (3)
  - CHILLS [None]
  - INFECTION [None]
  - BODY TEMPERATURE INCREASED [None]
